FAERS Safety Report 5677570-9 (Version None)
Quarter: 2008Q1

REPORT INFORMATION
  Report Type: 
  Country: None (occurrence: None)
  Receive Date: 20080318
  Receipt Date: 20080228
  Transmission Date: 20080703
  Serious: Yes (Death)
  Sender: FDA-Public Use
  Company Number: 2008S1003330

PATIENT
  Age: 76 Year
  Sex: Female

DRUGS (6)
  1. TEMAZEPAM [Suspect]
     Indication: ANAESTHESIA
     Dosage: 10 MG
     Dates: start: 19990210, end: 19990210
  2. MIDAZOLAM HCL [Suspect]
     Indication: ANAESTHESIA
     Dosage: 2 MG
     Dates: start: 19990210, end: 19990210
  3. PROPOFOL [Suspect]
     Indication: ANAESTHESIA
     Dosage: 50 MG
     Dates: start: 19990210, end: 19990210
  4. SEVOFLURANE [Suspect]
     Indication: DRUG USE FOR UNKNOWN INDICATION
     Dates: start: 19990210, end: 19990210
  5. NITROUS OXIDE W/ OXYGEN [Suspect]
     Indication: DRUG USE FOR UNKNOWN INDICATION
     Dates: start: 19990210, end: 19990210
  6. FENTANYL [Suspect]
     Indication: ANAESTHESIA
     Dosage: 50 UG; INTRAVENOUS
     Route: 042
     Dates: start: 19990210, end: 19990210

REACTIONS (2)
  - CARDIAC ARREST [None]
  - CARDIAC FAILURE [None]
